FAERS Safety Report 8053439 (Version 2)
Quarter: 2013Q2

REPORT INFORMATION
  Report Type: Report from Study
  Country: JP (occurrence: JP)
  Receive Date: 20110725
  Receipt Date: 20130524
  Transmission Date: 20140414
  Serious: Yes (Hospitalization, Other)
  Sender: FDA-Public Use
  Company Number: PHHY2011JP64266

PATIENT
  Sex: Female

DRUGS (1)
  1. AFINITOR [Suspect]
     Indication: METASTATIC RENAL CELL CARCINOMA
     Dosage: 5 MG DAILY
     Route: 048
     Dates: start: 20110111, end: 20110129

REACTIONS (6)
  - Anaemia [Not Recovered/Not Resolved]
  - Malignant neoplasm progression [Unknown]
  - Metastatic renal cell carcinoma [Unknown]
  - Blood alkaline phosphatase increased [Unknown]
  - Gamma-glutamyltransferase increased [Unknown]
  - Blood creatinine increased [Unknown]
